FAERS Safety Report 6470485-8 (Version None)
Quarter: 2009Q4

REPORT INFORMATION
  Report Type: 
  Country: None (occurrence: None)
  Receive Date: 20091202
  Receipt Date: 20091202
  Transmission Date: 20100525
  Serious: Yes (Other)
  Sender: FDA-Public Use
  Company Number: None

PATIENT
  Age: 50 Year
  Sex: Female
  Weight: 87.5442 kg

DRUGS (1)
  1. SAVELLA [Suspect]
     Indication: FIBROMYALGIA
     Dosage: 12.5 UP TO 50 MG. 2 X DAY PO
     Route: 048

REACTIONS (6)
  - ABNORMAL BEHAVIOUR [None]
  - ASTHENIA [None]
  - MALAISE [None]
  - MOOD ALTERED [None]
  - SOMNOLENCE [None]
  - SUICIDAL IDEATION [None]
